FAERS Safety Report 18126341 (Version 2)
Quarter: 2020Q3

REPORT INFORMATION
  Report Type: Spontaneous
  Country: US (occurrence: US)
  Receive Date: 20200808
  Receipt Date: 20200812
  Transmission Date: 20201103
  Serious: Yes (Other)
  Sender: FDA-Public Use
  Company Number: US-009507513-2008USA000128

PATIENT
  Sex: Male

DRUGS (2)
  1. SINEMET [Suspect]
     Active Substance: CARBIDOPA\LEVODOPA
     Dosage: 1 DOSAGE FORM, BID
     Route: 048
  2. NUEDEXTA [Suspect]
     Active Substance: DEXTROMETHORPHAN HYDROBROMIDE\QUINIDINE SULFATE
     Dosage: 1 DOSAGE FORM, BID
     Route: 065

REACTIONS (7)
  - Speech disorder [Unknown]
  - Parasomnia [Unknown]
  - Paranoia [Unknown]
  - Rapid eye movement sleep behaviour disorder [Unknown]
  - Hallucinations, mixed [Unknown]
  - Freezing phenomenon [Unknown]
  - Confusional state [Unknown]
